FAERS Safety Report 12639615 (Version 2)
Quarter: 2016Q3

REPORT INFORMATION
  Report Type: Not Available
  Country: AU (occurrence: AU)
  Receive Date: 20160810
  Receipt Date: 20160928
  Transmission Date: 20161109
  Serious: Yes (Other)
  Sender: FDA-Public Use
  Company Number: AU-BAUSCH-BL-2016-018867

PATIENT
  Sex: Female

DRUGS (2)
  1. VISUDYNE [Suspect]
     Active Substance: VERTEPORFIN
     Indication: MACULAR OEDEMA
     Route: 042
     Dates: start: 2005
  2. VISUDYNE [Suspect]
     Active Substance: VERTEPORFIN
     Indication: RETINAL ANEURYSM

REACTIONS (3)
  - Product use issue [Unknown]
  - Blindness unilateral [Unknown]
  - Visual acuity reduced [Unknown]
